FAERS Safety Report 24812945 (Version 1)
Quarter: 2025Q1

REPORT INFORMATION
  Report Type: Spontaneous
  Country: US (occurrence: None)
  Receive Date: 20250107
  Receipt Date: 20250107
  Transmission Date: 20250409
  Serious: No
  Sender: NATCO PHARMA
  Company Number: US-NATCOUSA-2024-NATCOUSA-000243

PATIENT
  Age: 73 Year
  Sex: Female
  Weight: 51.71 kg

DRUGS (5)
  1. LETROZOLE [Suspect]
     Active Substance: LETROZOLE
     Indication: Breast cancer female
     Route: 065
     Dates: start: 202409, end: 202410
  2. ANASTROZOLE [Suspect]
     Active Substance: ANASTROZOLE
     Indication: Breast cancer female
     Dates: start: 2018
  3. ATORVASTATIN [Concomitant]
     Active Substance: ATORVASTATIN
     Dosage: FOR MORE THAN 20 YEARS
  4. NEXIUM [Concomitant]
     Active Substance: ESOMEPRAZOLE MAGNESIUM
     Indication: Gastritis
     Dosage: +GT;20YEARS
  5. LETROZOLE [Suspect]
     Active Substance: LETROZOLE
     Indication: Breast cancer female
     Route: 065

REACTIONS (4)
  - Tendonitis [Unknown]
  - Arthralgia [Unknown]
  - Costochondritis [Unknown]
  - Carpal tunnel syndrome [Unknown]
